FAERS Safety Report 15703414 (Version 1)
Quarter: 2018Q4

REPORT INFORMATION
  Report Type: Spontaneous
  Country: US (occurrence: US)
  Receive Date: 20181210
  Receipt Date: 20181210
  Transmission Date: 20190205
  Serious: No
  Sender: FDA-Public Use
  Company Number: US-KYOWAKIRIN-2018BKK000752

PATIENT

DRUGS (1)
  1. SANCUSO [Suspect]
     Active Substance: GRANISETRON
     Indication: NAUSEA
     Dosage: WEAR PATCH FOR 7 DAYS, REMOVE AND APPLY A NEW PATCH
     Route: 061
     Dates: start: 2018

REACTIONS (10)
  - Drug ineffective for unapproved indication [Unknown]
  - Vomiting [Unknown]
  - Nausea [Unknown]
  - Constipation [Not Recovered/Not Resolved]
  - Headache [Unknown]
  - Feeling abnormal [Unknown]
  - Application site dryness [Unknown]
  - Application site reaction [Unknown]
  - Application site irritation [Unknown]
  - Application site pruritus [Unknown]

NARRATIVE: CASE EVENT DATE: 2018
